FAERS Safety Report 5170082-0 (Version None)
Quarter: 2006Q4

REPORT INFORMATION
  Report Type: 
  Country: None (occurrence: None)
  Receive Date: 20061201
  Receipt Date: 20061129
  Transmission Date: 20070319
  Serious: Yes (Other)
  Sender: FDA-Public Use
  Company Number: US-2006-004478

PATIENT
  Age: 83 Year
  Sex: Male

DRUGS (2)
  1. CAMPATH [Suspect]
     Indication: CHRONIC LYMPHOCYTIC LEUKAEMIA
     Dates: start: 20040224, end: 20040601
  2. CAMPATH [Suspect]
     Indication: CHRONIC LYMPHOCYTIC LEUKAEMIA
     Dates: start: 20060109

REACTIONS (2)
  - DIZZINESS POSTURAL [None]
  - NEUROENDOCRINE CARCINOMA OF THE SKIN [None]
